FAERS Safety Report 26080552 (Version 1)
Quarter: 2025Q4

REPORT INFORMATION
  Report Type: Spontaneous
  Country: IL (occurrence: IL)
  Receive Date: 20251124
  Receipt Date: 20251124
  Transmission Date: 20260118
  Serious: Yes (Life-Threatening)
  Sender: ASTELLAS
  Company Number: IL-GILEAD-2025-0737586

PATIENT
  Age: 5 Year

DRUGS (1)
  1. AMPHOTERICIN B [Suspect]
     Active Substance: AMPHOTERICIN B
     Indication: Product used for unknown indication
     Dosage: 63 MG
     Route: 065
     Dates: start: 20251026

REACTIONS (4)
  - Nausea [Unknown]
  - Abdominal pain [Unknown]
  - Dysgeusia [Unknown]
  - Erythema [Unknown]
